FAERS Safety Report 10476341 (Version 2)
Quarter: 2014Q4

REPORT INFORMATION
  Report Type: Report from Study
  Country: US (occurrence: US)
  Receive Date: 20140925
  Receipt Date: 20141104
  Transmission Date: 20150528
  Serious: Yes (Hospitalization, Other)
  Sender: FDA-Public Use
  Company Number: US-ABBVIE-14K-163-1287029-00

PATIENT
  Age: 63 Year
  Sex: Male
  Weight: 81.27 kg

DRUGS (15)
  1. NORCO [Concomitant]
     Active Substance: ACETAMINOPHEN\HYDROCODONE BITARTRATE
     Indication: PRODUCT USED FOR UNKNOWN INDICATION
     Dosage: 5-325 MG
  2. HUMIRA [Suspect]
     Active Substance: ADALIMUMAB
     Indication: CROHN^S DISEASE
     Route: 065
     Dates: start: 201308, end: 201308
  3. CALCIUM [Concomitant]
     Active Substance: CALCIUM
     Indication: PRODUCT USED FOR UNKNOWN INDICATION
  4. ZOFRAN [Concomitant]
     Active Substance: ONDANSETRON HYDROCHLORIDE
     Indication: PRODUCT USED FOR UNKNOWN INDICATION
  5. HUMIRA [Suspect]
     Active Substance: ADALIMUMAB
     Dosage: FOUR WEEKS AFTER 160 MG DOSE
     Route: 065
     Dates: start: 2013, end: 201401
  6. CALTRATE WITH VITAMIN D [Concomitant]
     Active Substance: CALCIUM CARBONATE\VITAMIN D
     Indication: PRODUCT USED FOR UNKNOWN INDICATION
  7. ADDERALL [Concomitant]
     Active Substance: AMPHETAMINE ASPARTATE\AMPHETAMINE SULFATE\DEXTROAMPHETAMINE SACCHARATE\DEXTROAMPHETAMINE SULFATE
     Indication: ATTENTION DEFICIT/HYPERACTIVITY DISORDER
     Route: 048
  8. HUMIRA [Suspect]
     Active Substance: ADALIMUMAB
     Route: 065
     Dates: start: 20140822
  9. GABAPENTIN. [Concomitant]
     Active Substance: GABAPENTIN
     Indication: GASTROINTESTINAL PAIN
     Dosage: MORNING, MIDDAY AND EVENING
     Route: 048
  10. TERAZOSIN [Concomitant]
     Active Substance: TERAZOSIN\TERAZOSIN HYDROCHLORIDE
     Indication: BENIGN PROSTATIC HYPERPLASIA
  11. VITAMIN D [Concomitant]
     Active Substance: CHOLECALCIFEROL
     Indication: PRODUCT USED FOR UNKNOWN INDICATION
     Dosage: SUPPLEMENT
  12. LOVENOX [Concomitant]
     Active Substance: ENOXAPARIN SODIUM
     Indication: DEEP VEIN THROMBOSIS
  13. HUMIRA [Suspect]
     Active Substance: ADALIMUMAB
     Dosage: TWO WEEKS AFTER 160 MG DOSE
     Route: 065
     Dates: start: 2013, end: 2013
  14. UNKNOWN MEDICATION [Concomitant]
     Active Substance: UNSPECIFIED INGREDIENT
     Indication: DYSPEPSIA
  15. ENTOCORT [Concomitant]
     Active Substance: BUDESONIDE
     Indication: PRODUCT USED FOR UNKNOWN INDICATION

REACTIONS (69)
  - Drug effect incomplete [Unknown]
  - Nausea [Unknown]
  - Asthenia [Not Recovered/Not Resolved]
  - Fatigue [Unknown]
  - Depression [Unknown]
  - Blood sodium decreased [Unknown]
  - Glomerular filtration rate decreased [Unknown]
  - Lipase decreased [Unknown]
  - Anorectal disorder [Recovered/Resolved]
  - Dehydration [Unknown]
  - Atrial fibrillation [Unknown]
  - Deep vein thrombosis [Unknown]
  - Stoma complication [Unknown]
  - Fistula [Recovering/Resolving]
  - Nausea [Unknown]
  - Neutrophil count increased [Unknown]
  - Lymphocyte count decreased [Unknown]
  - Blood creatine phosphokinase decreased [Unknown]
  - Blood 1,25-dihydroxycholecalciferol decreased [Unknown]
  - Abdominal distension [Unknown]
  - Cellulitis [Unknown]
  - Myositis [Unknown]
  - Incision site complication [Unknown]
  - Blood albumin decreased [Unknown]
  - Vomiting [Recovered/Resolved]
  - Staphylococcal infection [Recovered/Resolved]
  - Sepsis [Recovered/Resolved]
  - Abdominal adhesions [Unknown]
  - Malaise [Unknown]
  - Stoma site induration [Unknown]
  - Abdominal pain [Unknown]
  - Ileal stenosis [Unknown]
  - Snoring [Unknown]
  - Amnesia [Unknown]
  - Haemoglobin decreased [Unknown]
  - Blood glucose increased [Unknown]
  - Protein total decreased [Unknown]
  - Hepatic steatosis [Unknown]
  - Chills [Unknown]
  - Abdominal distension [Unknown]
  - Intestinal dilatation [Not Recovered/Not Resolved]
  - Implant site extravasation [Unknown]
  - Proctitis [Recovered/Resolved]
  - Incisional hernia [Unknown]
  - Drug ineffective [Unknown]
  - Gastrointestinal sounds abnormal [Unknown]
  - Enterocutaneous fistula [Recovering/Resolving]
  - Dyspepsia [Unknown]
  - Pollakiuria [Unknown]
  - Urinary incontinence [Unknown]
  - Sciatica [Unknown]
  - Haematocrit decreased [Unknown]
  - Intestinal dilatation [Not Recovered/Not Resolved]
  - Device related sepsis [Unknown]
  - Atrophy [Not Recovered/Not Resolved]
  - Dry skin [Unknown]
  - Temperature intolerance [Unknown]
  - Increased tendency to bruise [Unknown]
  - Red blood cell sedimentation rate increased [Unknown]
  - Blood chloride decreased [Unknown]
  - Gastrointestinal infection [Recovered/Resolved]
  - Vomiting [Unknown]
  - Hypophagia [Unknown]
  - Asthenia [Unknown]
  - Weight decreased [Unknown]
  - Red blood cell count decreased [Unknown]
  - Red cell distribution width increased [Unknown]
  - Alanine aminotransferase increased [Unknown]
  - Blood iron decreased [Unknown]

NARRATIVE: CASE EVENT DATE: 2014
